FAERS Safety Report 6150368-3 (Version None)
Quarter: 2009Q2

REPORT INFORMATION
  Report Type: 
  Country: None (occurrence: None)
  Receive Date: 20090409
  Receipt Date: 20090331
  Transmission Date: 20091009
  Serious: Yes (Other)
  Sender: FDA-Public Use
  Company Number: US-CELGENEUS-163-21880-09020450

PATIENT
  Sex: Female

DRUGS (4)
  1. REVLIMID [Suspect]
     Indication: MULTIPLE MYELOMA
     Route: 048
     Dates: start: 20081106, end: 20090101
  2. REVLIMID [Suspect]
     Route: 048
     Dates: start: 20090201, end: 20090201
  3. REVLIMID [Suspect]
     Route: 048
     Dates: start: 20090401
  4. DECADRON [Concomitant]
     Indication: MULTIPLE MYELOMA

REACTIONS (3)
  - ADVERSE DRUG REACTION [None]
  - MUCOSAL INFLAMMATION [None]
  - ORAL MUCOSAL DISCOLOURATION [None]
